FAERS Safety Report 9139498 (Version 2)
Quarter: 2013Q2

REPORT INFORMATION
  Report Type: Report from Study
  Country: BR (occurrence: BR)
  Receive Date: 20130305
  Receipt Date: 20130508
  Transmission Date: 20140414
  Serious: Yes (Other)
  Sender: FDA-Public Use
  Company Number: PHHY2013BR020719

PATIENT
  Age: 62 Year
  Sex: Female

DRUGS (4)
  1. DIOVAN HCT [Suspect]
     Indication: BLOOD PRESSURE ABNORMAL
     Dosage: 1 DF (320/25MG), QD
  2. PROPANOLOL [Concomitant]
     Indication: ARRHYTHMIA
     Dosage: 2 DF(40MG), DAILY
     Route: 048
  3. VYTORIN [Concomitant]
     Indication: BLOOD TRIGLYCERIDES ABNORMAL
     Dosage: 1 DF (10/20MG), DAILY
     Route: 048
  4. VYTORIN [Concomitant]
     Indication: BLOOD CHOLESTEROL INCREASED

REACTIONS (4)
  - Fall [Recovered/Resolved]
  - Upper limb fracture [Recovered/Resolved]
  - Benign neoplasm of thyroid gland [Recovering/Resolving]
  - Depressed mood [Not Recovered/Not Resolved]
